FAERS Safety Report 8986194 (Version 1)
Quarter: 2012Q4

REPORT INFORMATION
  Report Type: Spontaneous
  Country: FR (occurrence: None)
  Receive Date: 20121217
  Receipt Date: 20121217
  Transmission Date: 20130627
  Serious: Yes (Life-Threatening, Hospitalization)
  Sender: FDA-Public Use
  Company Number: DSM-2012-01363

PATIENT
  Age: 83 Year
  Sex: Female

DRUGS (3)
  1. SEVIKAR [Suspect]
     Route: 048
     Dates: end: 20120922
  2. PROCORALAN (IVABRADINE HYDROCHLORIDE)(IVABRADINE HYDROCHLORIDE) [Suspect]
     Dates: end: 20120922
  3. DIFFU K (POTASSIUM CHLORIDE) (CAPSULE) (POTASSIUM CHLORIDE) [Suspect]
     Dates: end: 20120922

REACTIONS (5)
  - Atrioventricular block complete [None]
  - Syncope [None]
  - Respiratory arrest [None]
  - Renal failure acute [None]
  - Hyperkalaemia [None]
